FAERS Safety Report 12919636 (Version 1)
Quarter: 2016Q4

REPORT INFORMATION
  Report Type: Spontaneous
  Country: US (occurrence: US)
  Receive Date: 20161103
  Receipt Date: 20161103
  Transmission Date: 20170207
  Serious: Yes (Death)
  Sender: FDA-Public Use
  Company Number: None

PATIENT
  Age: 46 Year
  Sex: Female

DRUGS (17)
  1. PERCOCET [Concomitant]
     Active Substance: ACETAMINOPHEN\OXYCODONE HYDROCHLORIDE
  2. AMOXICILLIN. [Concomitant]
     Active Substance: AMOXICILLIN
  3. LANTUS [Concomitant]
     Active Substance: INSULIN GLARGINE
  4. MEKINIST [Suspect]
     Active Substance: TRAMETINIB DIMETHYL SULFOXIDE
     Indication: MALIGNANT MELANOMA
     Route: 048
     Dates: start: 20160601
  5. CELEXA [Concomitant]
     Active Substance: CITALOPRAM HYDROBROMIDE
  6. DIFLUCAN [Concomitant]
     Active Substance: FLUCONAZOLE
  7. TRADJENTA [Concomitant]
     Active Substance: LINAGLIPTIN
  8. METFORMIN [Concomitant]
     Active Substance: METFORMIN HYDROCHLORIDE
  9. DYAZIDE [Concomitant]
     Active Substance: HYDROCHLOROTHIAZIDE\TRIAMTERENE
  10. TAFINLAR [Suspect]
     Active Substance: DABRAFENIB MESYLATE
     Indication: MALIGNANT MELANOMA
     Route: 048
     Dates: start: 20160601
  11. CYMBALTA [Concomitant]
     Active Substance: DULOXETINE HYDROCHLORIDE
  12. GLIMIPERIDE [Concomitant]
     Active Substance: GLIMEPIRIDE
  13. ACYCLOVIR. [Concomitant]
     Active Substance: ACYCLOVIR
  14. WELLBUTRIN [Concomitant]
     Active Substance: BUPROPION HYDROCHLORIDE
  15. COREG [Concomitant]
     Active Substance: CARVEDILOL
  16. CENTRUM [Concomitant]
     Active Substance: VITAMINS
  17. ALBUTEROL NEB [Concomitant]

REACTIONS (1)
  - Death [None]

NARRATIVE: CASE EVENT DATE: 20161103
